FAERS Safety Report 5060113-0 (Version None)
Quarter: 2006Q3

REPORT INFORMATION
  Report Type: 
  Country: None (occurrence: None)
  Receive Date: 20060719
  Receipt Date: 20060711
  Transmission Date: 20061208
  Serious: Yes (Other)
  Sender: FDA-Public Use
  Company Number: A-CH2006-12250

PATIENT
  Age: 48 Year
  Sex: Male
  Weight: 85 kg

DRUGS (3)
  1. TRACLEER [Suspect]
     Dosage: 125 MG, BID; ORAL, 62.5 MG, BID; ORAL
     Route: 048
     Dates: start: 20051110, end: 20051215
  2. TRACLEER [Suspect]
     Dosage: 125 MG, BID; ORAL, 62.5 MG, BID; ORAL
     Route: 048
     Dates: start: 20051216, end: 20060116
  3. TRACLEER [Suspect]

REACTIONS (3)
  - ALANINE AMINOTRANSFERASE INCREASED [None]
  - ASPARTATE AMINOTRANSFERASE INCREASED [None]
  - BLOOD BILIRUBIN INCREASED [None]
